FAERS Safety Report 10540424 (Version 1)
Quarter: 2014Q4

REPORT INFORMATION
  Report Type: Spontaneous
  Country: US (occurrence: US)
  Receive Date: 20141024
  Receipt Date: 20141024
  Transmission Date: 20150529
  Serious: No
  Sender: FDA-Public Use
  Company Number: US-UPSHER-SMITH LABORATORIES, INC.-13003872

PATIENT
  Age: 79 Year
  Sex: Female

DRUGS (1)
  1. KLOR-CON M [Suspect]
     Active Substance: POTASSIUM CHLORIDE
     Indication: BLOOD POTASSIUM DECREASED
     Dosage: 20 MEQ, QD
     Route: 048
     Dates: start: 201310, end: 201310

REACTIONS (1)
  - Foreign body [Recovered/Resolved]

NARRATIVE: CASE EVENT DATE: 201310
